FAERS Safety Report 5702616-9 (Version None)
Quarter: 2008Q2

REPORT INFORMATION
  Report Type: 
  Country: None (occurrence: None)
  Receive Date: 20080411
  Receipt Date: 20080402
  Transmission Date: 20081010
  Serious: Yes (Death, Hospitalization, Other)
  Sender: FDA-Public Use
  Company Number: US-ELI_LILLY_AND_COMPANY-US200804000598

PATIENT
  Sex: Male

DRUGS (2)
  1. HUMALOG [Suspect]
  2. NOVOLIN [Concomitant]

REACTIONS (3)
  - ABDOMINAL DISTENSION [None]
  - CARDIAC DISORDER [None]
  - GASTRIC DISORDER [None]
